FAERS Safety Report 8156739-8 (Version None)
Quarter: 2012Q1

REPORT INFORMATION
  Report Type: 
  Country: None (occurrence: None)
  Receive Date: 20120222
  Receipt Date: 20120213
  Transmission Date: 20120608
  Serious: Yes (Hospitalization)
  Sender: FDA-Public Use
  Company Number: JP-BAXTER-2012BH004530

PATIENT
  Age: 24 Year
  Sex: Male

DRUGS (1)
  1. FEIBA [Suspect]
     Indication: HAEMOPHILIA
     Route: 065

REACTIONS (1)
  - HAEMARTHROSIS [None]
